FAERS Safety Report 8723421 (Version 2)
Quarter: 2012Q4

REPORT INFORMATION
  Report Type: 
  Country: US (occurrence: US)
  Receive Date: 20120814
  Receipt Date: 20120913
  Transmission Date: 20130627
  Serious: No
  Sender: FDA-Public Use
  Company Number: US-ASTRAZENECA-2010SE40547

PATIENT
  Age: 54 Year
  Sex: Female

DRUGS (2)
  1. CRESTOR [Suspect]
     Route: 048
  2. CRESTOR [Suspect]
     Route: 048

REACTIONS (6)
  - Nasopharyngitis [Unknown]
  - Sinus disorder [Unknown]
  - Insomnia [Unknown]
  - Headache [Unknown]
  - Blood cholesterol increased [Unknown]
  - Intentional drug misuse [Unknown]
